FAERS Safety Report 5709910-6 (Version None)
Quarter: 2008Q2

REPORT INFORMATION
  Report Type: 
  Country: None (occurrence: None)
  Receive Date: 20080418
  Receipt Date: 20070419
  Transmission Date: 20081010
  Serious: No
  Sender: FDA-Public Use
  Company Number: US-ASTRAZENECA-2007UW07565

PATIENT
  Age: 67 Year
  Sex: Male
  Weight: 72.7 kg

DRUGS (6)
  1. TOPROL-XL [Suspect]
     Route: 048
  2. ROGAINE [Suspect]
     Indication: HAIR TRANSPLANT
     Route: 061
     Dates: start: 20050101, end: 20060414
  3. UNSPECIFIED DRUG [Concomitant]
     Indication: HYPERCHOLESTEROLAEMIA
     Route: 048
     Dates: start: 20050101
  4. NICOTINIC ACID [Concomitant]
     Indication: HYPERTRIGLYCERIDAEMIA
     Route: 048
     Dates: start: 20060201
  5. FOLIC ACID [Concomitant]
     Indication: CARDIAC DISORDER
     Route: 048
     Dates: start: 19960101
  6. A.P.C. [Concomitant]
     Indication: CARDIOVASCULAR EVENT PROPHYLAXIS
     Route: 048

REACTIONS (4)
  - BLOOD PRESSURE INCREASED [None]
  - CARDIAC DISORDER [None]
  - ERECTILE DYSFUNCTION [None]
  - FLUSHING [None]
